FAERS Safety Report 5705373-5 (Version None)
Quarter: 2008Q2

REPORT INFORMATION
  Report Type: 
  Country: None (occurrence: None)
  Receive Date: 20080415
  Receipt Date: 20080403
  Transmission Date: 20081010
  Serious: Yes (Other)
  Sender: FDA-Public Use
  Company Number: US-JNJFOC-20080401479

PATIENT
  Age: 30 Year
  Sex: Female

DRUGS (1)
  1. TOPAMAX [Suspect]
     Indication: DRUG USE FOR UNKNOWN INDICATION

REACTIONS (7)
  - ANGIOEDEMA [None]
  - CONJUNCTIVAL OEDEMA [None]
  - HEADACHE [None]
  - MACULOPATHY [None]
  - REFRACTION DISORDER [None]
  - VISION BLURRED [None]
  - VISUAL ACUITY REDUCED [None]
